FAERS Safety Report 7552617-3 (Version None)
Quarter: 2011Q2

REPORT INFORMATION
  Report Type: 
  Country: None (occurrence: None)
  Receive Date: 20110616
  Receipt Date: 20110602
  Transmission Date: 20111010
  Serious: Yes (Hospitalization)
  Sender: FDA-Public Use
  Company Number: US-JNJFOC-20110602010

PATIENT
  Sex: Male
  Weight: 113.4 kg

DRUGS (7)
  1. PREDNISONE [Concomitant]
     Indication: ARTHRITIS
     Route: 048
     Dates: start: 19960101
  2. VITAMIN D [Concomitant]
     Indication: NUTRITIONAL SUPPORT
     Route: 048
  3. CALCIUM CARBONATE [Concomitant]
     Indication: NUTRITIONAL SUPPORT
     Route: 048
  4. REMICADE [Suspect]
     Indication: RHEUMATOID ARTHRITIS
     Route: 042
     Dates: start: 20110209
  5. ASPIRIN [Concomitant]
     Indication: CARDIAC DISORDER
     Route: 048
  6. ARAVA [Concomitant]
     Indication: ARTHRITIS
     Route: 048
     Dates: start: 20080101
  7. VOLTAREN [Concomitant]
     Indication: ARTHRITIS
     Route: 048
     Dates: start: 19910101

REACTIONS (5)
  - SINUSITIS [None]
  - DRUG HYPERSENSITIVITY [None]
  - RHINITIS [None]
  - PNEUMONIA [None]
  - ATRIAL FIBRILLATION [None]
